FAERS Safety Report 7327814-2 (Version None)
Quarter: 2011Q1

REPORT INFORMATION
  Report Type: 
  Country: None (occurrence: None)
  Receive Date: 20110303
  Receipt Date: 20110219
  Transmission Date: 20110831
  Serious: Yes (Other)
  Sender: FDA-Public Use
  Company Number: US-PFIZER INC-2011036827

PATIENT
  Sex: Female
  Weight: 68.481 kg

DRUGS (20)
  1. DIHYDROERGOTAMINE MESYLATE [Suspect]
     Indication: MIGRAINE
     Dosage: UNK
     Route: 042
     Dates: start: 20090701, end: 20090701
  2. TRAZODONE [Concomitant]
     Indication: DEPRESSION
     Dosage: 300 MG, 1X/DAY
  3. TRAMADOL [Concomitant]
     Dosage: 200 MG, UNK
  4. PROMETHAZINE [Concomitant]
     Indication: MIGRAINE
     Dosage: 25 MG, AS NEEDED
  5. PRISTIQ [Suspect]
     Indication: DEPRESSION
     Dosage: 100 MG, 1X/DAY
     Route: 048
     Dates: start: 20100101
  6. LAMICTAL [Concomitant]
     Indication: BIPOLAR DISORDER
     Dosage: 100 MG, UNK
  7. DEPACON [Concomitant]
     Indication: MIGRAINE PROPHYLAXIS
     Dosage: 500 MG AT NIGHT AND 125 MG IN THE MORNING
  8. XANAX [Concomitant]
     Indication: ANXIETY
     Dosage: 3 MG, DAILY
  9. TRAZODONE [Concomitant]
     Indication: INSOMNIA
  10. LIPITOR [Concomitant]
     Indication: BLOOD CHOLESTEROL INCREASED
     Dosage: 10 MG, 1X/DAY
  11. CIMETIDINE [Concomitant]
     Indication: URTICARIA CHRONIC
     Dosage: 300 MG, 3X/DAY
  12. CYPROHEPTADINE [Concomitant]
     Indication: URTICARIA CHRONIC
     Dosage: 4 MG, 3X/DAY
  13. VALTREX [Concomitant]
     Dosage: 500 MG, UNK
  14. SKELAXIN [Concomitant]
     Indication: MUSCLE RELAXANT THERAPY
     Dosage: 800 MG, 3X/DAY AS NEEDED BUT NOT MORE THAN THREE DAYS A WEEK
  15. FENTANYL [Concomitant]
     Indication: MIGRAINE
     Dosage: 600 MCG, AS NEEDED
     Route: 048
  16. DILAUDID [Concomitant]
     Indication: MIGRAINE
     Dosage: 400 MG, AS NEEDED
  17. AMBIEN [Concomitant]
     Indication: SLEEP DISORDER
     Dosage: 20 MG, 1X/DAY
  18. ALPRAZOLAM [Concomitant]
     Indication: ANXIETY
     Dosage: 0.5 MG, AS NEEDED
  19. ONDANSETRON [Concomitant]
     Indication: NAUSEA
     Dosage: UNK
  20. ONDANSETRON [Concomitant]
     Indication: MIGRAINE

REACTIONS (1)
  - MYOCARDIAL INFARCTION [None]
